FAERS Safety Report 10582617 (Version 1)
Quarter: 2014Q4

REPORT INFORMATION
  Report Type: Spontaneous
  Country: US (occurrence: US)
  Receive Date: 20141113
  Receipt Date: 20141113
  Transmission Date: 20150529
  Serious: No
  Sender: FDA-Public Use
  Company Number: US-ENDO PHARMACEUTICALS INC.-VALS20140051

PATIENT
  Age: 77 Year
  Sex: Male

DRUGS (1)
  1. VALSTAR [Suspect]
     Active Substance: VALRUBICIN
     Indication: BLADDER CANCER
     Route: 043
     Dates: start: 20140717, end: 20140821

REACTIONS (2)
  - Pollakiuria [Not Recovered/Not Resolved]
  - Instillation site erythema [Not Recovered/Not Resolved]

NARRATIVE: CASE EVENT DATE: 201407
